FAERS Safety Report 24769242 (Version 1)
Quarter: 2024Q4

REPORT INFORMATION
  Report Type: Spontaneous
  Country: US (occurrence: US)
  Receive Date: 20241224
  Receipt Date: 20241224
  Transmission Date: 20250115
  Serious: No
  Sender: ABBVIE
  Company Number: US-ABBVIE-6059180

PATIENT
  Age: 18 Year
  Sex: Female
  Weight: 51 kg

DRUGS (3)
  1. LILETTA [Suspect]
     Active Substance: LEVONORGESTREL
     Indication: Dysmenorrhoea
     Dosage: FORM STRENGTH- 52 MILLIGRAM
     Route: 015
     Dates: start: 20240410
  2. LILETTA [Suspect]
     Active Substance: LEVONORGESTREL
     Indication: Heavy menstrual bleeding
  3. FLUOXETINE [Concomitant]
     Active Substance: FLUOXETINE HYDROCHLORIDE
     Indication: Anxiety

REACTIONS (3)
  - Vaginal haemorrhage [Not Recovered/Not Resolved]
  - Device expulsion [Not Recovered/Not Resolved]
  - Non-consummation [Not Recovered/Not Resolved]

NARRATIVE: CASE EVENT DATE: 20240101
